FAERS Safety Report 7911760 (Version 2)
Quarter: 2013Q1

REPORT INFORMATION
  Report Type: Spontaneous
  Country: MX (occurrence: MX)
  Receive Date: 20110422
  Receipt Date: 20130123
  Transmission Date: 20140127
  Serious: Yes (Other)
  Sender: FDA-Public Use
  Company Number: PHHY2010MX22543

PATIENT
  Age: 55 Year
  Sex: Female

DRUGS (4)
  1. GALVUS MET [Suspect]
     Indication: DIABETES MELLITUS
     Dosage: 2 DF (500/50 MG) DAILY
     Route: 048
     Dates: start: 20100101
  2. RASILEZ [Suspect]
     Indication: HYPERTENSION
     Dosage: 1 DF, QD
     Route: 048
     Dates: start: 20100101, end: 20100315
  3. ASPIRINA [Concomitant]
  4. INSULIN [Concomitant]
     Dosage: 1 DF, UNK
     Dates: end: 20100315

REACTIONS (4)
  - Blood pressure increased [Recovered/Resolved]
  - Blood glucose increased [Recovered/Resolved]
  - Tinnitus [Not Recovered/Not Resolved]
  - Malaise [Not Recovered/Not Resolved]
